FAERS Safety Report 25069055 (Version 3)
Quarter: 2025Q3

REPORT INFORMATION
  Report Type: Report from Study
  Country: CN (occurrence: CN)
  Receive Date: 20250312
  Receipt Date: 20250813
  Transmission Date: 20251021
  Serious: Yes (Other)
  Sender: ALEXION PHARMACEUTICALS
  Company Number: CN-ASTRAZENECA-202503GLO002205CN

PATIENT
  Age: 8 Year
  Sex: Female

DRUGS (15)
  1. SELUMETINIB [Suspect]
     Active Substance: SELUMETINIB
     Dosage: 20 MILLIGRAM, QD
     Route: 065
     Dates: start: 20241003, end: 20241003
  2. SELUMETINIB [Suspect]
     Active Substance: SELUMETINIB
     Dosage: 20 MILLIGRAM, BID
     Route: 065
     Dates: start: 20241004, end: 20250108
  3. SELUMETINIB [Suspect]
     Active Substance: SELUMETINIB
     Dosage: 10 MILLIGRAM, BID
     Route: 065
     Dates: start: 20250109, end: 20250123
  4. SELUMETINIB [Suspect]
     Active Substance: SELUMETINIB
     Dosage: 20 MILLIGRAM, QD
     Route: 065
     Dates: start: 20250124, end: 20250124
  5. SELUMETINIB [Suspect]
     Active Substance: SELUMETINIB
     Dosage: 10 MILLIGRAM, QD
     Route: 065
     Dates: start: 20250124, end: 20250124
  6. SELUMETINIB [Suspect]
     Active Substance: SELUMETINIB
     Dosage: 20 MILLIGRAM, BID
     Route: 065
     Dates: start: 20250125
  7. Compound chloramphenicol [Concomitant]
     Route: 065
     Dates: start: 20241101, end: 20250120
  8. Pediatric paracetamol and chlorphenamine [Concomitant]
     Dosage: UNK G , QD
     Route: 065
     Dates: start: 20250315, end: 20250318
  9. Pediatric paracetamol and chlorphenamine [Concomitant]
     Dosage: UNK G, QD
     Route: 065
     Dates: start: 20250326, end: 20250330
  10. Pediatric paracetamol and chlorphenamine [Concomitant]
     Dosage: UNK G, QD
     Route: 065
     Dates: start: 20250405, end: 20250408
  11. Pediatric paracetamol and chlorphenamine [Concomitant]
     Dosage: UNK G, QD
     Route: 065
     Dates: start: 20250422, end: 20250424
  12. AMOXICILLIN [Concomitant]
     Active Substance: AMOXICILLIN
     Dosage: UNK G, QD
     Route: 065
     Dates: start: 20250315, end: 20250318
  13. AMOXICILLIN [Concomitant]
     Active Substance: AMOXICILLIN
     Dosage: UNK G, QD
     Route: 065
     Dates: start: 20250326, end: 20250330
  14. AMOXICILLIN [Concomitant]
     Active Substance: AMOXICILLIN
     Dosage: UNK G, QD
     Route: 065
     Dates: start: 20250405, end: 20250408
  15. AMOXICILLIN [Concomitant]
     Active Substance: AMOXICILLIN
     Dosage: UNK G, QD
     Route: 065
     Dates: start: 20250422, end: 20250424

REACTIONS (1)
  - Myocardial necrosis marker increased [Recovered/Resolved]

NARRATIVE: CASE EVENT DATE: 20250108
